FAERS Safety Report 15843514 (Version 1)
Quarter: 2019Q1

REPORT INFORMATION
  Report Type: Spontaneous
  Country: GR (occurrence: GR)
  Receive Date: 20190118
  Receipt Date: 20190118
  Transmission Date: 20190417
  Serious: Yes (Other)
  Sender: FDA-Public Use
  Company Number: GR-AVERITAS PHARMA, INC.-2019-10199

PATIENT
  Age: 36 Year
  Sex: Female
  Weight: 82 kg

DRUGS (3)
  1. CAPSAICIN. [Suspect]
     Active Substance: CAPSAICIN
     Indication: MUSCLE SPASMS
     Dosage: 1 DF, UNK
     Route: 003
     Dates: start: 20170925, end: 20170925
  2. T4 [Concomitant]
     Active Substance: LEVOTHYROXINE
     Indication: HYPERTHYROIDISM
     Dosage: UNK
  3. XOZAL [Concomitant]
     Active Substance: LEVOCETIRIZINE
     Indication: PRURITUS
     Dosage: UNK

REACTIONS (8)
  - Dyspnoea [Recovered/Resolved]
  - Tachycardia [Recovered/Resolved]
  - Diaphragmalgia [Recovered/Resolved]
  - Lacrimation increased [Recovered/Resolved]
  - Application site burn [Recovered/Resolved]
  - Nasal congestion [Recovered/Resolved]
  - Skin burning sensation [Recovered/Resolved]
  - Application site pruritus [Recovered/Resolved]

NARRATIVE: CASE EVENT DATE: 20170925
